FAERS Safety Report 24922643 (Version 3)
Quarter: 2025Q2

REPORT INFORMATION
  Report Type: Spontaneous
  Country: CA (occurrence: CA)
  Receive Date: 20250204
  Receipt Date: 20250625
  Transmission Date: 20250717
  Serious: Yes (Hospitalization, Other)
  Sender: SANOFI AVENTIS
  Company Number: CA-SA-2025SA031535

PATIENT
  Age: 78 Year
  Sex: Female

DRUGS (44)
  1. ASPIRIN [Suspect]
     Active Substance: ASPIRIN
     Indication: Cerebrovascular accident
     Route: 048
  2. ASPIRIN [Suspect]
     Active Substance: ASPIRIN
     Indication: Anticoagulant therapy
  3. BETAMETHASONE [Suspect]
     Active Substance: BETAMETHASONE
     Indication: Psoriasis
  4. CLOPIDOGREL BISULFATE [Suspect]
     Active Substance: CLOPIDOGREL BISULFATE
     Indication: Anticoagulant therapy
  5. AMLODIPINE [Suspect]
     Active Substance: AMLODIPINE BESYLATE
     Indication: Hypertension
     Dosage: 10 MG, QD
  6. CALCIUM CARBONATE [Suspect]
     Active Substance: CALCIUM CARBONATE
     Indication: Osteoporosis
  7. GLICLAZIDE [Suspect]
     Active Substance: GLICLAZIDE
     Indication: Diabetes mellitus
     Dosage: 30 MG, BID
  8. GLICLAZIDE [Suspect]
     Active Substance: GLICLAZIDE
     Dosage: 60 MG, QD
  9. APIXABAN [Suspect]
     Active Substance: APIXABAN
     Indication: Anticoagulant therapy
     Dosage: 2 DF, QD
     Route: 048
  10. LEVOTHYROXINE SODIUM [Suspect]
     Active Substance: LEVOTHYROXINE SODIUM
     Indication: Hypothyroidism
  11. ACEBUTOLOL HYDROCHLORIDE [Suspect]
     Active Substance: ACEBUTOLOL HYDROCHLORIDE
     Indication: Hypertension
  12. ALBUTEROL SULFATE [Suspect]
     Active Substance: ALBUTEROL SULFATE
     Indication: Product used for unknown indication
  13. BETAMETHASONE VALERATE [Suspect]
     Active Substance: BETAMETHASONE VALERATE
     Indication: Psoriasis
  14. METFORMIN HYDROCHLORIDE [Suspect]
     Active Substance: METFORMIN HYDROCHLORIDE
     Indication: Diabetes mellitus
     Dosage: 1000 MG, QD
  15. VALSARTAN [Suspect]
     Active Substance: VALSARTAN
     Indication: Hypertension
     Dosage: 320 MG, QD
  16. LABETALOL [Suspect]
     Active Substance: LABETALOL
     Indication: Hypertension
     Dosage: 200 MG, BID
  17. LABETALOL [Suspect]
     Active Substance: LABETALOL
     Dosage: 500 MG, BID
  18. HYDRALAZINE [Suspect]
     Active Substance: HYDRALAZINE HYDROCHLORIDE
     Indication: Hypertension
  19. VITAMIN B12 [Suspect]
     Active Substance: CYANOCOBALAMIN
     Indication: Product used for unknown indication
  20. THEO-DUR [Suspect]
     Active Substance: THEOPHYLLINE ANHYDROUS
     Indication: Hypertension
  21. ALISKIREN [Suspect]
     Active Substance: ALISKIREN
     Indication: Hypertension
     Dosage: 300 MG, QD
  22. ZOCOR [Suspect]
     Active Substance: SIMVASTATIN
     Indication: Cerebrovascular accident
     Dosage: 10 MG, QD
  23. CALCIUM GLUCONATE [Suspect]
     Active Substance: CALCIUM GLUCONATE
     Indication: Osteoporosis
  24. JANUVIA [Suspect]
     Active Substance: SITAGLIPTIN PHOSPHATE
     Route: 048
  25. TRAMADOL HYDROCHLORIDE [Concomitant]
     Active Substance: TRAMADOL HYDROCHLORIDE
     Indication: Pain
  26. ALLOPURINOL [Concomitant]
     Active Substance: ALLOPURINOL
     Indication: Prophylaxis
  27. ALLOPURINOL [Concomitant]
     Active Substance: ALLOPURINOL
     Indication: Gout
     Dosage: 250 MG, QD
  28. ALLOPURINOL [Concomitant]
     Active Substance: ALLOPURINOL
  29. ALLOPURINOL [Concomitant]
     Active Substance: ALLOPURINOL
     Dosage: 10 MG, QD
  30. CALCIPOTRIENE [Concomitant]
     Active Substance: CALCIPOTRIENE
     Indication: Psoriasis
  31. FLUTICASONE PROPIONATE [Concomitant]
     Active Substance: FLUTICASONE PROPIONATE
     Indication: Wheezing
     Dosage: 2 DF, BID
  32. FLUTICASONE PROPIONATE [Concomitant]
     Active Substance: FLUTICASONE PROPIONATE
     Indication: Cough
  33. FUROSEMIDE [Concomitant]
     Active Substance: FUROSEMIDE
     Indication: Oedema peripheral
     Dosage: 40 MG, QD
  34. PANTOPRAZOLE [Concomitant]
     Active Substance: PANTOPRAZOLE
     Indication: Product used for unknown indication
     Dosage: 40 MG, QD
  35. PRAMIPEXOLE DIHYDROCHLORIDE [Concomitant]
     Active Substance: PRAMIPEXOLE DIHYDROCHLORIDE
     Indication: Restless legs syndrome
  36. RANITIDINE [Concomitant]
     Active Substance: RANITIDINE
     Indication: Dyspepsia
  37. RISEDRONATE SODIUM [Concomitant]
     Active Substance: RISEDRONATE SODIUM
     Indication: Osteoporosis
     Dosage: 35 MG, QW
  38. CYANOCOBALAMIN [Concomitant]
     Active Substance: CYANOCOBALAMIN
     Indication: Product used for unknown indication
  39. ACETAMINOPHEN [Concomitant]
     Active Substance: ACETAMINOPHEN
     Indication: Pain
     Dosage: 325 MG, BID
  40. ERGOCALCIFEROL [Concomitant]
     Active Substance: ERGOCALCIFEROL
     Indication: Osteoporosis
     Dosage: 1 DF, QD
  41. ACETAMINOPHEN\METHOCARBAMOL [Concomitant]
     Active Substance: ACETAMINOPHEN\METHOCARBAMOL
     Indication: Back pain
  42. HERBALS\PLANTAGO OVATA LEAF [Concomitant]
     Active Substance: HERBALS\PLANTAGO OVATA LEAF
     Indication: Constipation
  43. IBUPROFEN [Concomitant]
     Active Substance: IBUPROFEN
     Indication: Product used for unknown indication
  44. SITAGLIPTIN [Concomitant]
     Active Substance: SITAGLIPTIN
     Indication: Diabetes mellitus

REACTIONS (16)
  - Abdominal discomfort [Unknown]
  - Amnesia [Unknown]
  - Blood pressure inadequately controlled [Unknown]
  - Cognitive disorder [Unknown]
  - Contusion [Unknown]
  - Depressed mood [Unknown]
  - Diabetes mellitus inadequate control [Unknown]
  - Exercise tolerance decreased [Unknown]
  - Hypertension [Unknown]
  - Mobility decreased [Unknown]
  - Oedema peripheral [Unknown]
  - Multiple drug therapy [Unknown]
  - Product use issue [Unknown]
  - Medication error [Unknown]
  - Drug ineffective [Unknown]
  - Treatment noncompliance [Unknown]
